FAERS Safety Report 5810292-X (Version None)
Quarter: 2008Q3

REPORT INFORMATION
  Report Type: 
  Country: None (occurrence: None)
  Receive Date: 20080715
  Receipt Date: 20080612
  Transmission Date: 20090109
  Serious: No
  Sender: FDA-Public Use
  Company Number: A0712516A

PATIENT
  Age: 62 Year
  Sex: Male

DRUGS (1)
  1. IMITREX [Suspect]
     Indication: MIGRAINE
     Dosage: 50MG UNKNOWN
     Route: 048

REACTIONS (3)
  - DRUG INEFFECTIVE [None]
  - HEADACHE [None]
  - THERAPEUTIC RESPONSE DECREASED [None]
